FAERS Safety Report 4291490-6 (Version None)
Quarter: 2004Q1

REPORT INFORMATION
  Report Type: 
  Country: None (occurrence: None)
  Receive Date: 20040211
  Receipt Date: 20030124
  Transmission Date: 20041129
  Serious: No
  Sender: FDA-Public Use
  Company Number: US-BRISTOL-MYERS SQUIBB COMPANY-12167029

PATIENT
  Age: 4 Year
  Sex: Male
  Weight: 18 kg

DRUGS (1)
  1. CEFZIL [Suspect]
     Indication: EAR INFECTION
     Dosage: TAKEN FOR 5 DAYS FROM 1/10/03 TO 1/15/03 AND AGAIN FOR 5 DAYS UNTIL 1/23/03
     Route: 048
     Dates: start: 20030110, end: 20030123

REACTIONS (1)
  - DRUG INEFFECTIVE [None]
